FAERS Safety Report 6591017-X (Version None)
Quarter: 2010Q1

REPORT INFORMATION
  Report Type: 
  Country: None (occurrence: None)
  Receive Date: 20100219
  Receipt Date: 20100211
  Transmission Date: 20100710
  Serious: Yes (Other)
  Sender: FDA-Public Use
  Company Number: BR-ABBOTT-10P-020-0625876-00

PATIENT
  Age: 11 Year

DRUGS (1)
  1. KLACID I.V. [Suspect]
     Indication: PEPTIC ULCER
     Route: 042
     Dates: start: 20100126, end: 20100209

REACTIONS (2)
  - ERYTHEMA [None]
  - PYREXIA [None]
